FAERS Safety Report 10926999 (Version 6)
Quarter: 2015Q2

REPORT INFORMATION
  Report Type: Spontaneous
  Country: JP (occurrence: JP)
  Receive Date: 20150318
  Receipt Date: 20150420
  Transmission Date: 20150821
  Serious: Yes (Life-Threatening, Other)
  Sender: FDA-Public Use
  Company Number: JP-PFIZER INC-2015060980

PATIENT
  Age: 95 Year
  Sex: Female
  Weight: 43 kg

DRUGS (15)
  1. LYRICA [Suspect]
     Active Substance: PREGABALIN
     Indication: POST HERPETIC NEURALGIA
     Dosage: 25 MG, 2X/DAY
     Route: 048
     Dates: start: 20141121, end: 20141204
  2. LYRICA [Suspect]
     Active Substance: PREGABALIN
     Dosage: 100 MG, DAILY
     Route: 048
     Dates: start: 20141205, end: 20141218
  3. ADALAT [Concomitant]
     Active Substance: NIFEDIPINE
     Indication: HYPERTENSION
     Dosage: 1 DF, 1X/DAY
     Route: 048
     Dates: start: 20110428, end: 20150109
  4. XYZAL [Concomitant]
     Active Substance: LEVOCETIRIZINE DIHYDROCHLORIDE
     Indication: DERMATITIS
     Dosage: 1 DF, 1X/DAY
     Route: 048
     Dates: start: 20141104, end: 20141219
  5. C PARA [Concomitant]
     Indication: HYPOVITAMINOSIS
     Dosage: 1 DF, 1X/DAY
     Dates: start: 20141027, end: 20141027
  6. ARICEPT [Concomitant]
     Active Substance: DONEPEZIL HYDROCHLORIDE
     Indication: DEMENTIA ALZHEIMER^S TYPE
     Dosage: 5 MG, 1X/DAY
     Route: 048
     Dates: start: 20110712, end: 20150109
  7. LYRICA [Suspect]
     Active Substance: PREGABALIN
     Dosage: 75 MG, 3X/DAY
     Route: 048
     Dates: start: 20141226, end: 20150109
  8. IRTRA [Concomitant]
     Active Substance: IRBESARTAN\TRICHLORMETHIAZIDE
     Indication: HYPERTENSION
     Dosage: 1 DF, 1X/DAY
     Route: 048
     Dates: start: 20131225, end: 20150109
  9. LYRICA [Suspect]
     Active Substance: PREGABALIN
     Dosage: 75 MG, 2X/DAY
     Route: 048
     Dates: start: 20141219, end: 20141225
  10. KETAS [Concomitant]
     Active Substance: IBUDILAST
     Indication: DIZZINESS
     Dosage: 1 DF, 3X/DAY
     Route: 048
     Dates: start: 20110712, end: 20150109
  11. PNEUMOVAX 23 [Concomitant]
     Active Substance: PNEUMOCOCCAL VACCINE, POLYVALENT 23
     Indication: PROPHYLAXIS
     Dosage: 0.5 MG, 1X/DAY
     Route: 058
     Dates: start: 20141219, end: 20141219
  12. RAPIACTA [Concomitant]
     Active Substance: PERAMIVIR
     Indication: INFLUENZA
     Dosage: 300 MG, 1X/DAY
     Route: 042
     Dates: start: 20150105, end: 20150105
  13. COUGHCODE N [Concomitant]
     Indication: INFLUENZA
     Dosage: 2 DF, 3X/DAY
     Route: 048
     Dates: start: 20150105, end: 20150109
  14. METHISTA [Concomitant]
     Active Substance: CARBOCYSTEINE
     Indication: INFLUENZA
     Dosage: 500 MG, 3X/DAY
     Dates: start: 20150105
  15. LOXONIN [Concomitant]
     Active Substance: LOXOPROFEN SODIUM
     Indication: PYREXIA
     Dosage: 1 DF, 1X/DAY
     Route: 048
     Dates: start: 20150105, end: 20150105

REACTIONS (4)
  - Renal disorder [Recovered/Resolved]
  - Influenza [Recovered/Resolved]
  - Anaemia [Recovered/Resolved]
  - Decubitus ulcer [Recovering/Resolving]

NARRATIVE: CASE EVENT DATE: 20150105
